FAERS Safety Report 7730753-6 (Version None)
Quarter: 2011Q3

REPORT INFORMATION
  Report Type: 
  Country: None (occurrence: None)
  Receive Date: 20110906
  Receipt Date: 20110902
  Transmission Date: 20111222
  Serious: Yes (Other)
  Sender: FDA-Public Use
  Company Number: PT-GLAXOSMITHKLINE-B0743966A

PATIENT
  Sex: Male
  Weight: 70 kg

DRUGS (5)
  1. ALLOPURINOL [Concomitant]
     Dosage: 150MG PER DAY
  2. ATORVASTATIN [Concomitant]
  3. AVODART [Suspect]
     Indication: PRODUCT USED FOR UNKNOWN INDICATION
     Dosage: .5MG PER DAY
     Route: 048
     Dates: start: 20090311, end: 20110815
  4. ASPIRIN [Concomitant]
  5. CLOPIDOGREL [Concomitant]

REACTIONS (1)
  - ATRIAL FIBRILLATION [None]
